FAERS Safety Report 9387899 (Version 1)
Quarter: 2013Q3

REPORT INFORMATION
  Report Type: Spontaneous
  Country: US (occurrence: US)
  Receive Date: 20130708
  Receipt Date: 20130708
  Transmission Date: 20140515
  Serious: No
  Sender: FDA-Public Use
  Company Number: US-009507513-1306USA006204

PATIENT
  Sex: Female

DRUGS (1)
  1. NEXPLANON [Suspect]
     Dosage: 1 ROD
     Route: 059
     Dates: start: 20130612

REACTIONS (3)
  - Complication of device insertion [Unknown]
  - Device issue [Unknown]
  - No adverse event [Unknown]
